FAERS Safety Report 15205623 (Version 1)
Quarter: 2018Q3

REPORT INFORMATION
  Report Type: Spontaneous
  Country: US (occurrence: US)
  Receive Date: 20180628
  Receipt Date: 20180628
  Transmission Date: 20181010
  Serious: No
  Sender: FDA-Public Use
  Company Number: None

PATIENT
  Age: 60 Year
  Sex: Male

DRUGS (1)
  1. AFINITOR [Suspect]
     Active Substance: EVEROLIMUS
     Dates: start: 20180214, end: 20180628

REACTIONS (7)
  - Laceration [None]
  - Deep vein thrombosis [None]
  - Infection [None]
  - Lower limb fracture [None]
  - Oedema [None]
  - Haematoma [None]
  - Weight increased [None]

NARRATIVE: CASE EVENT DATE: 20180214
